FAERS Safety Report 5041337-5 (Version None)
Quarter: 2006Q2

REPORT INFORMATION
  Report Type: 
  Country: None (occurrence: None)
  Receive Date: 20060626
  Receipt Date: 20060619
  Transmission Date: 20061013
  Serious: Yes (Other)
  Sender: FDA-Public Use
  Company Number: TPA2006A00992

PATIENT
  Age: 52 Year
  Sex: Female
  Weight: 78.4723 kg

DRUGS (6)
  1. ROZEREM [Suspect]
     Indication: SLEEP DISORDER DUE TO GENERAL MEDICAL CONDITION, INSOMNIA TYPE
     Dosage: 8 MG, HS, PER ORAL
     Route: 048
     Dates: start: 20060515, end: 20060516
  2. MULTI-MINERAL SUPPLEMENT (MINERAL SUPPLEMENTS) (TABLETS) [Concomitant]
  3. GLUCOSAMINE/CHONDROITIN (GLUCOSAMINE, CHONDROITIN SULFATE) (TABLETS) [Concomitant]
  4. POTASSIUM (POTASSIUM) (TABLETS) [Concomitant]
  5. MAGNESIUM (MAGNESIUM) (TABLETS) [Concomitant]
  6. CALCIUM (CALCIUM) (TABLETS) [Concomitant]

REACTIONS (8)
  - DRY MOUTH [None]
  - DYSPHAGIA [None]
  - EUSTACHIAN TUBE DISORDER [None]
  - FEAR [None]
  - FEELING ABNORMAL [None]
  - HEART RATE INCREASED [None]
  - INSOMNIA [None]
  - THROAT TIGHTNESS [None]
